FAERS Safety Report 16098213 (Version 2)
Quarter: 2019Q2

REPORT INFORMATION
  Report Type: Spontaneous
  Country: US (occurrence: US)
  Receive Date: 20190321
  Receipt Date: 20190408
  Transmission Date: 20190711
  Serious: No
  Sender: FDA-Public Use
  Company Number: US-AMGEN-USASP2019043302

PATIENT
  Age: 73 Year
  Sex: Male
  Weight: 86.09 kg

DRUGS (5)
  1. NEULASTA [Suspect]
     Active Substance: PEGFILGRASTIM
     Indication: NEUTROPENIA
     Dosage: 6 MILLIGRAM
     Route: 058
     Dates: start: 20180811
  2. 5 FU [Concomitant]
     Active Substance: FLUOROURACIL
     Dosage: Q14 DAYS
  3. OXALIPLATIN. [Concomitant]
     Active Substance: OXALIPLATIN
     Dosage: Q14 DAYS
  4. FOLINIC ACID [Concomitant]
     Active Substance: LEUCOVORIN
     Dosage: Q14 DAYS
  5. AVASTIN [Concomitant]
     Active Substance: BEVACIZUMAB
     Dosage: Q14 DAYS

REACTIONS (1)
  - Unintentional medical device removal [Unknown]

NARRATIVE: CASE EVENT DATE: 20190316
